FAERS Safety Report 13297993 (Version 1)
Quarter: 2017Q1

REPORT INFORMATION
  Report Type: Spontaneous
  Country: US (occurrence: US)
  Receive Date: 20170306
  Receipt Date: 20170306
  Transmission Date: 20170428
  Serious: No
  Sender: FDA-Public Use
  Company Number: US-AMGEN-USASP2017032961

PATIENT
  Age: 48 Year
  Sex: Female

DRUGS (1)
  1. ENBREL [Suspect]
     Active Substance: ETANERCEPT
     Indication: PRODUCT USED FOR UNKNOWN INDICATION
     Dosage: UNK
     Route: 065

REACTIONS (11)
  - Aphthous ulcer [Unknown]
  - Tremor [Unknown]
  - Chills [Unknown]
  - Nerve compression [Unknown]
  - Back disorder [Unknown]
  - Malaise [Unknown]
  - Fatigue [Unknown]
  - Adverse event [Unknown]
  - Discomfort [Unknown]
  - Oral candidiasis [Unknown]
  - Paraesthesia [Unknown]

NARRATIVE: CASE EVENT DATE: 2017
